FAERS Safety Report 18208700 (Version 2)
Quarter: 2021Q1

REPORT INFORMATION
  Report Type: Spontaneous
  Country: US (occurrence: US)
  Receive Date: 20200828
  Receipt Date: 20210302
  Transmission Date: 20210419
  Serious: Yes (Other)
  Sender: FDA-Public Use
  Company Number: US-PURDUE-USA-2020-0163503

PATIENT
  Sex: Male

DRUGS (1)
  1. OXYCONTIN [Suspect]
     Active Substance: OXYCODONE HYDROCHLORIDE
     Indication: PRODUCT USED FOR UNKNOWN INDICATION
     Dosage: 80 MG, 5 TABLETS BID
     Route: 048

REACTIONS (11)
  - Intestinal obstruction [Unknown]
  - Rash [Unknown]
  - Urinary tract disorder [Unknown]
  - Emotional distress [Unknown]
  - Mental impairment [Unknown]
  - Weight increased [Unknown]
  - Weight decreased [Unknown]
  - Drug ineffective [Unknown]
  - Skin discolouration [Unknown]
  - Major depression [Unknown]
  - Libido decreased [Unknown]
